FAERS Safety Report 13431197 (Version 1)
Quarter: 2017Q2

REPORT INFORMATION
  Report Type: Spontaneous
  Country: US (occurrence: US)
  Receive Date: 20170412
  Receipt Date: 20170412
  Transmission Date: 20170830
  Serious: No
  Sender: FDA-Public Use
  Company Number: PHEH2017US010541

PATIENT
  Age: 32 Year
  Sex: Female

DRUGS (1)
  1. COSENTYX [Suspect]
     Active Substance: SECUKINUMAB
     Indication: PSORIASIS
     Dosage: 300 MG, QW
     Route: 058
     Dates: start: 20170406

REACTIONS (3)
  - Injection site pain [Recovering/Resolving]
  - Muscular weakness [Recovering/Resolving]
  - Injection site hypoaesthesia [Recovering/Resolving]

NARRATIVE: CASE EVENT DATE: 20170406
